FAERS Safety Report 20437050 (Version 1)
Quarter: 2022Q1

REPORT INFORMATION
  Report Type: Spontaneous
  Country: US (occurrence: None)
  Receive Date: 20220204
  Receipt Date: 20220204
  Transmission Date: 20220423
  Serious: Yes (Other)
  Sender: FDA-Public Use
  Company Number: None

PATIENT
  Sex: Female

DRUGS (8)
  1. ENBREL [Suspect]
     Active Substance: ETANERCEPT
     Indication: Rheumatoid arthritis
     Dosage: INJECT 1 PEN UNDER THE SKIN (SUBCUTANEOUS  INJECTION) ONCE A WEEK
     Route: 058
     Dates: start: 20200218
  2. ALBUTEROL AER HFA [Concomitant]
  3. AZELASTINE SPR 0.1% [Concomitant]
  4. CYCLOBENZAPR TAB 10MG [Concomitant]
  5. GABAPENTIN CAP 400MG [Concomitant]
  6. PANTOPRAZOLE TAB 40MG [Concomitant]
  7. PAROXETINE TAB 20MG [Concomitant]
  8. SYNTHROID [Concomitant]
     Active Substance: LEVOTHYROXINE SODIUM

REACTIONS (3)
  - Oral neoplasm [None]
  - Arthritis [None]
  - Therapy interrupted [None]
